FAERS Safety Report 4655286-5 (Version None)
Quarter: 2005Q2

REPORT INFORMATION
  Report Type: 
  Country: None (occurrence: None)
  Receive Date: 20050505
  Receipt Date: 20050420
  Transmission Date: 20051028
  Serious: Yes (Other)
  Sender: FDA-Public Use
  Company Number: USA040259398

PATIENT
  Age: 83 Year
  Sex: Female
  Weight: 41 kg

DRUGS (11)
  1. EVISTA [Suspect]
     Indication: OSTEOPOROSIS
     Dosage: 60 MG/ 1 DAY
     Dates: start: 19930101, end: 20040601
  2. FORTEO [Suspect]
     Indication: OSTEOPOROSIS
     Dosage: 20 UG DAY
     Dates: start: 20040601
  3. FOSAMAX [Concomitant]
  4. CALCIUM GLUCONATE [Concomitant]
  5. TRAZADONE (TRAZODONE) [Concomitant]
  6. AMBIEN [Concomitant]
  7. DICYCLOVERINE [Concomitant]
  8. MULTI-VITAMIN [Concomitant]
  9. VITAMIN E [Concomitant]
  10. VIT C TAB [Concomitant]
  11. ASPIRIN [Concomitant]

REACTIONS (21)
  - ACCIDENT [None]
  - ARTHRITIS [None]
  - BLOOD CALCIUM INCREASED [None]
  - BONE DENSITY DECREASED [None]
  - BONE DENSITY INCREASED [None]
  - BRADYPHRENIA [None]
  - BREAST CANCER FEMALE [None]
  - CONDITION AGGRAVATED [None]
  - FEAR [None]
  - GASTROINTESTINAL INJURY [None]
  - HYPERPHAGIA [None]
  - IMPAIRED DRIVING ABILITY [None]
  - INJECTION SITE HAEMORRHAGE [None]
  - INJECTION SITE PAIN [None]
  - LIMB INJURY [None]
  - MALAISE [None]
  - MEDICAL DEVICE COMPLICATION [None]
  - OSTEOPOROSIS [None]
  - PAIN IN EXTREMITY [None]
  - SUTURE RELATED COMPLICATION [None]
  - WOUND HAEMORRHAGE [None]
